FAERS Safety Report 6663061-5 (Version None)
Quarter: 2010Q1

REPORT INFORMATION
  Report Type: 
  Country: None (occurrence: None)
  Receive Date: 20100329
  Receipt Date: 20090326
  Transmission Date: 20100710
  Serious: Yes (Life-Threatening, Hospitalization)
  Sender: FDA-Public Use
  Company Number: 2009EN000123

PATIENT
  Age: 16 Year
  Sex: Female
  Weight: 60.4 kg

DRUGS (10)
  1. ONCASPAR [Suspect]
     Indication: ACUTE LYMPHOCYTIC LEUKAEMIA
     Dosage: 4050 IU; IV
     Route: 042
     Dates: start: 20081028, end: 20081111
  2. TYLENOL-500 [Concomitant]
  3. BENADRYL [Concomitant]
  4. ZOFRAN [Concomitant]
  5. DECADRON [Concomitant]
  6. BACTRIM [Concomitant]
  7. FAMOTIDINE [Concomitant]
  8. PEG-3350 [Concomitant]
  9. VINCRISTINE [Concomitant]
  10. DOXORUGICIN [Concomitant]

REACTIONS (6)
  - ANAPHYLACTIC REACTION [None]
  - DYSPNOEA [None]
  - NEUTROPHIL COUNT DECREASED [None]
  - THROAT TIGHTNESS [None]
  - WHEEZING [None]
  - WHITE BLOOD CELL COUNT DECREASED [None]
